FAERS Safety Report 11048046 (Version 3)
Quarter: 2015Q2

REPORT INFORMATION
  Report Type: Spontaneous
  Country: US (occurrence: US)
  Receive Date: 20150420
  Receipt Date: 20150507
  Transmission Date: 20150821
  Serious: Yes (Other)
  Sender: FDA-Public Use
  Company Number: US-PFIZER INC-2015130846

PATIENT
  Age: 47 Year
  Sex: Female

DRUGS (1)
  1. BOSULIF [Suspect]
     Active Substance: BOSUTINIB MONOHYDRATE
     Dosage: 500 MG, 1X/DAY
     Route: 048
     Dates: start: 20150411, end: 20150429

REACTIONS (8)
  - Paraesthesia [Unknown]
  - Blood pressure increased [Unknown]
  - Headache [Unknown]
  - Angina pectoris [Unknown]
  - Chest pain [Unknown]
  - Abdominal pain upper [Recovered/Resolved]
  - Paraesthesia oral [Unknown]
  - Nausea [Recovered/Resolved]

NARRATIVE: CASE EVENT DATE: 20150412
